FAERS Safety Report 23677026 (Version 1)
Quarter: 2024Q1

REPORT INFORMATION
  Report Type: Spontaneous
  Country: US (occurrence: None)
  Receive Date: 20240326
  Receipt Date: 20240326
  Transmission Date: 20240409
  Serious: No
  Sender: FDA-Public Use
  Company Number: None

PATIENT
  Age: 50 Year
  Sex: Male
  Weight: 58.97 kg

DRUGS (1)
  1. COSENTYX [Suspect]
     Active Substance: SECUKINUMAB
     Indication: Hidradenitis
     Dosage: NJECTE 300MG (1 PEN) SUBCUTANEOUSLY EVERY WEEK FOR ? WEEKS 2 AND 3 AS DIRECTED.?
     Route: 058
     Dates: start: 202312

REACTIONS (2)
  - Condition aggravated [None]
  - Hidradenitis [None]
